FAERS Safety Report 4515480-0 (Version None)
Quarter: 2004Q4

REPORT INFORMATION
  Report Type: 
  Country: None (occurrence: None)
  Receive Date: 20041126
  Receipt Date: 20041108
  Transmission Date: 20050328
  Serious: Yes (Death, Hospitalization)
  Sender: FDA-Public Use
  Company Number: 1654

PATIENT
  Age: 48 Year
  Sex: Female

DRUGS (8)
  1. AVINZA [Suspect]
     Dosage: 60 MG QD PO
     Route: 048
     Dates: start: 20040815, end: 20040828
  2. CLONAZEPAM [Concomitant]
  3. DIVALPROEX SODIUM [Concomitant]
  4. ESCITALOPRAM [Concomitant]
  5. ESTRADIOL [Concomitant]
  6. GABAPENTIN [Concomitant]
  7. MECLIZINE [Concomitant]
  8. POTASSIUM CHLORIDE [Concomitant]

REACTIONS (9)
  - ABNORMAL BEHAVIOUR [None]
  - AGITATION [None]
  - AUTOIMMUNE DISORDER [None]
  - CEREBRAL HAEMORRHAGE [None]
  - CEREBROVASCULAR ACCIDENT [None]
  - COMA [None]
  - ENCEPHALOPATHY [None]
  - RENAL FAILURE [None]
  - VIRAL INFECTION [None]
